FAERS Safety Report 14931576 (Version 1)
Quarter: 2018Q2

REPORT INFORMATION
  Report Type: Report from Study
  Country: CN (occurrence: CN)
  Receive Date: 20180524
  Receipt Date: 20180524
  Transmission Date: 20180711
  Serious: Yes (Other)
  Sender: FDA-Public Use
  Company Number: CN-ROCHE-1984007

PATIENT
  Sex: Female
  Weight: 60 kg

DRUGS (1)
  1. AVASTIN [Suspect]
     Active Substance: BEVACIZUMAB
     Indication: COLON CANCER
     Dosage: 450 MG AND 400 MG BY ALTERNATE USE ONCE PER 3 WEEKS.
     Route: 041
     Dates: start: 20160809

REACTIONS (6)
  - Ascites [Unknown]
  - Pyrexia [Unknown]
  - Diarrhoea [Unknown]
  - Oropharyngeal pain [Unknown]
  - General physical health deterioration [Unknown]
  - Drug ineffective [Unknown]
